FAERS Safety Report 15895202 (Version 1)
Quarter: 2019Q1

REPORT INFORMATION
  Report Type: Spontaneous
  Country: US (occurrence: US)
  Receive Date: 20190131
  Receipt Date: 20190131
  Transmission Date: 20190417
  Serious: Yes (Other)
  Sender: FDA-Public Use
  Company Number: None

PATIENT
  Age: 56 Year
  Sex: Male
  Weight: 103 kg

DRUGS (4)
  1. FENTANYL. [Concomitant]
     Active Substance: FENTANYL
     Dates: start: 20190123, end: 20190123
  2. ROCURONIUM [Suspect]
     Active Substance: ROCURONIUM BROMIDE
     Indication: SURGERY
     Dates: start: 20190123, end: 20190123
  3. LIDOCAINE. [Concomitant]
     Active Substance: LIDOCAINE
     Dates: start: 20190123, end: 20190123
  4. PROPOFOL. [Concomitant]
     Active Substance: PROPOFOL
     Dates: start: 20190123, end: 20190123

REACTIONS (1)
  - Device effect incomplete [None]

NARRATIVE: CASE EVENT DATE: 20190123
